FAERS Safety Report 12847357 (Version 1)
Quarter: 2016Q4

REPORT INFORMATION
  Report Type: Spontaneous
  Country: US (occurrence: US)
  Receive Date: 20161013
  Receipt Date: 20161013
  Transmission Date: 20170207
  Serious: Yes (Disabling)
  Sender: FDA-Public Use
  Company Number: None

PATIENT
  Age: 41 Year
  Sex: Female
  Weight: 63.9 kg

DRUGS (7)
  1. THYROID [Concomitant]
     Active Substance: LEVOTHYROXINE\LIOTHYRONINE
  2. D [Concomitant]
  3. MULTI [Concomitant]
  4. ENZYMES [Concomitant]
  5. SEMORELIN ACETATE 9MG [Suspect]
     Active Substance: SERMORELIN ACETATE
     Indication: AUTOIMMUNE DISORDER
     Dosage: QUANTITY:4 INJECTION(S);??EVERY 4 HOURS
     Route: 030
  6. SEMORELIN ACETATE 9MG [Suspect]
     Active Substance: SERMORELIN ACETATE
     Indication: GASTROINTESTINAL DISORDER
     Dosage: QUANTITY:4 INJECTION(S);??EVERY 4 HOURS
     Route: 030
  7. NALTREXONE [Concomitant]
     Active Substance: NALTREXONE

REACTIONS (4)
  - Malaise [None]
  - Fatigue [None]
  - Pyrexia [None]
  - Diarrhoea [None]

NARRATIVE: CASE EVENT DATE: 20161013
